FAERS Safety Report 22143778 (Version 4)
Quarter: 2023Q2

REPORT INFORMATION
  Report Type: Report from Study
  Country: US (occurrence: US)
  Receive Date: 20230327
  Receipt Date: 20230629
  Transmission Date: 20230721
  Serious: Yes (Hospitalization, Other)
  Sender: FDA-Public Use
  Company Number: US-BoehringerIngelheim-2022-BI-165316

PATIENT
  Age: 64 Year
  Sex: Male

DRUGS (1)
  1. OFEV [Suspect]
     Active Substance: NINTEDANIB
     Indication: Idiopathic pulmonary fibrosis
     Dosage: LOT NO-103705,105560,106235, 106515
     Route: 048
     Dates: start: 20220322, end: 202212

REACTIONS (19)
  - Pneumonia [Unknown]
  - Volvulus [Unknown]
  - Intestinal haemorrhage [Unknown]
  - Urinary tract infection [Unknown]
  - Pulmonary congestion [Unknown]
  - Haematochezia [Unknown]
  - Gastric ulcer [Unknown]
  - Haemorrhoidal haemorrhage [Not Recovered/Not Resolved]
  - Abdominal discomfort [Unknown]
  - Constipation [Unknown]
  - Wheezing [Unknown]
  - Dyspnoea [Unknown]
  - Lacrimation increased [Unknown]
  - Influenza [Unknown]
  - Decreased appetite [Unknown]
  - Vision blurred [Unknown]
  - Dizziness [Unknown]
  - Haematochezia [Recovered/Resolved]
  - Palpitations [Recovered/Resolved]

NARRATIVE: CASE EVENT DATE: 20220301
